FAERS Safety Report 7173859-5 (Version None)
Quarter: 2010Q4

REPORT INFORMATION
  Report Type: 
  Country: None (occurrence: None)
  Receive Date: 20101219
  Receipt Date: 20100311
  Transmission Date: 20110411
  Serious: Yes (Hospitalization)
  Sender: FDA-Public Use
  Company Number: US-AMGEN-QUU399143

PATIENT

DRUGS (2)
  1. ENBREL [Suspect]
     Indication: RHEUMATOID ARTHRITIS
     Dosage: 25 MG, 2 TIMES/WK
     Route: 058
     Dates: start: 20000501
  2. METHOTREXATE [Concomitant]
     Dosage: 12.5 MG, QWK
     Dates: start: 19970101

REACTIONS (5)
  - ABDOMINAL PAIN [None]
  - CHOLECYSTECTOMY [None]
  - FOOT FRACTURE [None]
  - GAIT DISTURBANCE [None]
  - STAG HORN CALCULUS [None]
